FAERS Safety Report 6055763-9 (Version None)
Quarter: 2009Q1

REPORT INFORMATION
  Report Type: 
  Country: None (occurrence: None)
  Receive Date: 20090126
  Receipt Date: 20081211
  Transmission Date: 20090719
  Serious: Yes (Hospitalization)
  Sender: FDA-Public Use
  Company Number: 2009S1000025

PATIENT
  Age: 72 Year
  Sex: Female

DRUGS (5)
  1. ACITRETIN [Suspect]
     Indication: PSORIASIS
     Dosage: 25 MG; PO, 25 MG; QD; PO
     Route: 048
     Dates: start: 20080601, end: 20081112
  2. ACITRETIN [Suspect]
     Indication: PSORIASIS
     Dosage: 25 MG; PO, 25 MG; QD; PO
     Route: 048
     Dates: start: 20081112, end: 20081203
  3. VANCOMYCIN [Concomitant]
  4. AZTREONAM [Concomitant]
  5. FLAGYL [Concomitant]

REACTIONS (2)
  - ABDOMINAL PAIN [None]
  - CHOLELITHIASIS [None]
